FAERS Safety Report 4339841-8 (Version None)
Quarter: 2004Q2

REPORT INFORMATION
  Report Type: 
  Country: None (occurrence: None)
  Receive Date: 20040416
  Receipt Date: 20040324
  Transmission Date: 20050107
  Serious: Yes (Life-Threatening, Hospitalization)
  Sender: FDA-Public Use
  Company Number: DE-BRISTOL-MYERS SQUIBB COMPANY-12540373

PATIENT
  Age: 79 Year
  Sex: Male
  Weight: 78 kg

DRUGS (3)
  1. PACLITAXEL [Suspect]
     Indication: BLADDER CANCER
     Dates: start: 20030704, end: 20030704
  2. CISPLATIN [Suspect]
     Indication: BLADDER CANCER
     Dates: start: 20030622, end: 20030622
  3. GEMCITABINE [Suspect]
     Indication: BLADDER CANCER
     Dates: start: 20030704, end: 20030704

REACTIONS (3)
  - GENERAL PHYSICAL HEALTH DETERIORATION [None]
  - HYPERTENSIVE CRISIS [None]
  - HYPERTONIA [None]
